FAERS Safety Report 5573783-5 (Version None)
Quarter: 2007Q4

REPORT INFORMATION
  Report Type: 
  Country: None (occurrence: None)
  Receive Date: 20071226
  Receipt Date: 20071220
  Transmission Date: 20080405
  Serious: Yes (Other)
  Sender: FDA-Public Use
  Company Number: NZ-ASTRAZENECA-2007AP08081

PATIENT
  Age: 5592 Day
  Sex: Male
  Weight: 60.3 kg

DRUGS (2)
  1. SEROQUEL [Suspect]
     Indication: MOOD SWINGS
     Route: 048
     Dates: start: 20061106, end: 20071205
  2. METHYLPREDNISOLONE SR [Concomitant]
     Indication: ATTENTION DEFICIT/HYPERACTIVITY DISORDER

REACTIONS (1)
  - PENIS DISORDER [None]
